FAERS Safety Report 5457700-4 (Version None)
Quarter: 2007Q3

REPORT INFORMATION
  Report Type: 
  Country: None (occurrence: None)
  Receive Date: 20070918
  Receipt Date: 20070308
  Transmission Date: 20080115
  Serious: No
  Sender: FDA-Public Use
  Company Number: US-ASTRAZENECA-2007UW04568

PATIENT
  Age: 53 Year
  Sex: Male
  Weight: 95.3 kg

DRUGS (3)
  1. SEROQUEL [Suspect]
     Route: 048
     Dates: start: 20060901
  2. ATENOLOL [Concomitant]
  3. VICODIN [Concomitant]

REACTIONS (3)
  - CONTUSION [None]
  - FALL [None]
  - NIGHTMARE [None]
